FAERS Safety Report 6660418-3 (Version None)
Quarter: 2010Q1

REPORT INFORMATION
  Report Type: 
  Country: None (occurrence: None)
  Receive Date: 20100331
  Receipt Date: 20100325
  Transmission Date: 20100710
  Serious: Yes (Death, Other)
  Sender: FDA-Public Use
  Company Number: DE-CELGENEUS-062-50794-10020937

PATIENT
  Age: 67 Year
  Sex: Male
  Weight: 81 kg

DRUGS (9)
  1. VIDAZA [Suspect]
     Route: 051
     Dates: start: 20100118, end: 20100122
  2. CYTARABINE [Suspect]
     Route: 051
     Dates: start: 20100123, end: 20100129
  3. DAUNORUBICIN HCL [Suspect]
     Route: 051
     Dates: start: 20100125, end: 20100127
  4. DEXRAZOXANE [Suspect]
     Indication: EXTRAVASATION
     Route: 051
     Dates: start: 20100129, end: 20100129
  5. DEXRAZOXANE [Suspect]
     Route: 051
     Dates: start: 20100127, end: 20100127
  6. DEXRAZOXANE [Suspect]
     Route: 051
     Dates: start: 20100128, end: 20100128
  7. NOXAFIL [Suspect]
     Indication: PROPHYLAXIS
     Route: 048
     Dates: start: 20100115, end: 20100205
  8. PANTOPRAZOLE SODIUM [Suspect]
     Indication: PROPHYLAXIS
     Route: 048
     Dates: start: 20100118, end: 20100204
  9. COTRIM [Suspect]
     Indication: PROPHYLAXIS
     Route: 048
     Dates: start: 20100118, end: 20100204

REACTIONS (4)
  - ACUTE HEPATIC FAILURE [None]
  - CARDIAC FAILURE ACUTE [None]
  - HYPERBILIRUBINAEMIA [None]
  - RENAL FAILURE ACUTE [None]
